FAERS Safety Report 18090819 (Version 2)
Quarter: 2020Q4

REPORT INFORMATION
  Report Type: Spontaneous
  Country: US (occurrence: US)
  Receive Date: 20200730
  Receipt Date: 20201006
  Transmission Date: 20210113
  Serious: Yes (Hospitalization, Other)
  Sender: FDA-Public Use
  Company Number: US-UNITED THERAPEUTICS-UNT-2020-010827

PATIENT
  Age: 69 Year
  Sex: Male
  Weight: 82.54 kg

DRUGS (3)
  1. REMODULIN [Suspect]
     Active Substance: TREPROSTINIL
     Dosage: 0.05625 ?G/KG, CONTINUING
     Route: 041
  2. REMODULIN [Suspect]
     Active Substance: TREPROSTINIL
     Indication: PULMONARY ARTERIAL HYPERTENSION
     Dosage: UNK, CONTINUING
     Route: 041
     Dates: start: 20200609
  3. REMODULIN [Suspect]
     Active Substance: TREPROSTINIL
     Dosage: 0.0484 ?G/KG, CONTINUING
     Route: 041

REACTIONS (4)
  - Somnolence [Unknown]
  - Fatigue [Unknown]
  - Anaemia [Unknown]
  - Large intestinal haemorrhage [Unknown]

NARRATIVE: CASE EVENT DATE: 2020
